FAERS Safety Report 12675028 (Version 2)
Quarter: 2016Q3

REPORT INFORMATION
  Report Type: Report from Study
  Country: US (occurrence: US)
  Receive Date: 20160822
  Receipt Date: 20160830
  Transmission Date: 20161109
  Serious: Yes (Death, Other)
  Sender: FDA-Public Use
  Company Number: US-GILEAD-2016-0229344

PATIENT
  Age: 61 Year
  Sex: Male

DRUGS (1)
  1. IDELALISIB [Suspect]
     Active Substance: IDELALISIB
     Indication: B-CELL LYMPHOMA
     Dosage: 100 MG, BID
     Route: 048
     Dates: start: 201608

REACTIONS (4)
  - Squamous cell carcinoma [Fatal]
  - B-cell lymphoma [Fatal]
  - Wound [Fatal]
  - Septic shock [Fatal]
